FAERS Safety Report 4853221-8 (Version None)
Quarter: 2005Q4

REPORT INFORMATION
  Report Type: 
  Country: None (occurrence: None)
  Receive Date: 20051212
  Receipt Date: 20051128
  Transmission Date: 20060501
  Serious: Yes (Hospitalization)
  Sender: FDA-Public Use
  Company Number: 2005BI018584

PATIENT
  Age: 57 Year
  Sex: Female

DRUGS (17)
  1. AVONEX [Suspect]
     Indication: MULTIPLE SCLEROSIS
     Dosage: 30 UG; QW; IM
     Route: 030
     Dates: start: 20030714, end: 20030901
  2. AVONEX [Suspect]
     Indication: MULTIPLE SCLEROSIS
     Dosage: 30 UG; QW; IM
     Route: 030
     Dates: start: 20030901
  3. ASPIRIN [Concomitant]
  4. CALAN [Concomitant]
  5. DIOVAN [Concomitant]
  6. FAMVIR [Concomitant]
  7. LEXAPRO [Concomitant]
  8. NEURONTIN [Concomitant]
  9. NITROGLYCERIN [Concomitant]
  10. NITROQUICK [Concomitant]
  11. PROVIGIL [Concomitant]
  12. RELAFEN [Concomitant]
  13. ASCORBIC ACID W/VITAMIN B NOS [Concomitant]
  14. VITA-E [Concomitant]
  15. WELLBUTRIN SR [Concomitant]
  16. ZOCOR [Concomitant]
  17. PLAVIX [Concomitant]

REACTIONS (11)
  - CORONARY ARTERY DISEASE [None]
  - CORONARY ARTERY OCCLUSION [None]
  - DIZZINESS [None]
  - DYSPNOEA [None]
  - HEART RATE INCREASED [None]
  - HYPERTENSION [None]
  - HYPERTENSIVE HEART DISEASE [None]
  - JOINT INJURY [None]
  - LABILE BLOOD PRESSURE [None]
  - MITRAL VALVE INCOMPETENCE [None]
  - MYOCARDIAL ISCHAEMIA [None]
